FAERS Safety Report 10731968 (Version 1)
Quarter: 2015Q1

REPORT INFORMATION
  Report Type: Spontaneous
  Country: JP (occurrence: JP)
  Receive Date: 20150123
  Receipt Date: 20150123
  Transmission Date: 20150721
  Serious: Yes (Other)
  Sender: FDA-Public Use
  Company Number: PHHY2015JP003381

PATIENT
  Age: 44 Year
  Sex: Female

DRUGS (1)
  1. GILENYA [Suspect]
     Active Substance: FINGOLIMOD HYDROCHLORIDE
     Indication: MULTIPLE SCLEROSIS
     Route: 065

REACTIONS (12)
  - Vital capacity decreased [Unknown]
  - Diplopia [Unknown]
  - Multiple sclerosis relapse [Unknown]
  - Memory impairment [Unknown]
  - Central nervous system lesion [Unknown]
  - Respiratory disorder [Unknown]
  - Dysarthria [Unknown]
  - Paraparesis [Unknown]
  - Oropharyngeal pain [Unknown]
  - Muscular weakness [Unknown]
  - Ataxia [Unknown]
  - Expanded disability status scale score increased [Unknown]
